FAERS Safety Report 5729854-3 (Version None)
Quarter: 2008Q2

REPORT INFORMATION
  Report Type: 
  Country: None (occurrence: None)
  Receive Date: 20080502
  Receipt Date: 20080423
  Transmission Date: 20081010
  Serious: Yes (Other)
  Sender: FDA-Public Use
  Company Number: 2008010281

PATIENT
  Sex: Female

DRUGS (1)
  1. LISTERINE WHITENING QUICK DISSOLVING STRIPS (NO ACTIVE INGREDIENT) [Suspect]
     Indication: DENTAL CARE
     Dosage: 2 STRIPS IN MORNING, 2 STRIPS AT NIGHT (4 IN 1 D), ORAL
     Route: 048
     Dates: start: 20080419, end: 20080421

REACTIONS (2)
  - SENSITIVITY OF TEETH [None]
  - WRONG TECHNIQUE IN DRUG USAGE PROCESS [None]
